FAERS Safety Report 8101738-5 (Version None)
Quarter: 2012Q1

REPORT INFORMATION
  Report Type: 
  Country: None (occurrence: None)
  Receive Date: 20120131
  Receipt Date: 20120119
  Transmission Date: 20120608
  Serious: Yes (Other)
  Sender: FDA-Public Use
  Company Number: PHHY2012JP005376

PATIENT
  Age: 87 Year
  Sex: Male

DRUGS (2)
  1. EXFORGE [Concomitant]
     Route: 048
     Dates: start: 20100630
  2. RASILEZ [Suspect]
     Indication: HYPERTENSION
     Dosage: 150 MG, QD
     Route: 048
     Dates: start: 20100112, end: 20120111

REACTIONS (4)
  - BLOOD PRESSURE DECREASED [None]
  - TRANSIENT ISCHAEMIC ATTACK [None]
  - FATIGUE [None]
  - FALL [None]
